FAERS Safety Report 7117367-6 (Version None)
Quarter: 2010Q4

REPORT INFORMATION
  Report Type: 
  Country: None (occurrence: None)
  Receive Date: 20101122
  Receipt Date: 20101115
  Transmission Date: 20110411
  Serious: Yes (Hospitalization)
  Sender: FDA-Public Use
  Company Number: AT-ROCHE-742113

PATIENT
  Sex: Male
  Weight: 85 kg

DRUGS (2)
  1. PEGINTERFERON ALFA-2A [Suspect]
     Route: 058
     Dates: start: 20091215, end: 20100315
  2. RIBAVIRIN [Suspect]
     Dosage: FREQUENCY 1-0-1/PER DAY
     Route: 048
     Dates: start: 20091215, end: 20100315

REACTIONS (9)
  - ANAEMIA [None]
  - ASTHENIA [None]
  - HYPOKALAEMIA [None]
  - HYPONATRAEMIA [None]
  - LEUKOPENIA [None]
  - NAUSEA [None]
  - RENAL FAILURE ACUTE [None]
  - THROMBOCYTOPENIA [None]
  - VOMITING [None]
